FAERS Safety Report 15425099 (Version 1)
Quarter: 2018Q4

REPORT INFORMATION
  Report Type: Spontaneous
  Country: US (occurrence: US)
  Receive Date: 20180925
  Receipt Date: 20180925
  Transmission Date: 20190204
  Serious: No
  Sender: FDA-Public Use
  Company Number: US-THERAPEUTICSMD-2018TMD00034

PATIENT
  Age: 55 Year
  Sex: Female
  Weight: 87.98 kg

DRUGS (7)
  1. VITAMIN D3 [Concomitant]
     Active Substance: CHOLECALCIFEROL
  2. VITAMIN B12 [Concomitant]
     Active Substance: CYANOCOBALAMIN
  3. IMVEXXY [Suspect]
     Active Substance: ESTRADIOL
     Indication: HAEMORRHAGE
  4. MOTRIN [Concomitant]
     Active Substance: IBUPROFEN
  5. BIOTIN [Concomitant]
     Active Substance: BIOTIN
  6. IMVEXXY [Suspect]
     Active Substance: ESTRADIOL
     Indication: DYSPAREUNIA
     Dosage: 1 DOSAGE UNITS, 1X/DAY BEFORE BED
     Route: 067
     Dates: start: 20180719, end: 20180722
  7. MULTIVITAMIN [Concomitant]
     Active Substance: VITAMINS

REACTIONS (4)
  - Nausea [Recovered/Resolved]
  - Flatulence [Recovered/Resolved]
  - Tearfulness [Recovered/Resolved]
  - Feeling abnormal [Recovered/Resolved]

NARRATIVE: CASE EVENT DATE: 201807
